FAERS Safety Report 7516101-5 (Version None)
Quarter: 2011Q2

REPORT INFORMATION
  Report Type: 
  Country: None (occurrence: None)
  Receive Date: 20110601
  Receipt Date: 20110524
  Transmission Date: 20111010
  Serious: Yes (Other)
  Sender: FDA-Public Use
  Company Number: GB-ROCHE-650013

PATIENT
  Age: 3 Year
  Sex: Male

DRUGS (2)
  1. NATURE PLUS [Concomitant]
  2. TAMIFLU [Suspect]
     Route: 048
     Dates: start: 20090729, end: 20090801

REACTIONS (4)
  - ANGER [None]
  - HISTRIONIC PERSONALITY DISORDER [None]
  - PERSONALITY CHANGE [None]
  - EMOTIONAL DISORDER [None]
